FAERS Safety Report 21238598 (Version 1)
Quarter: 2022Q3

REPORT INFORMATION
  Report Type: Report from Study
  Country: US (occurrence: US)
  Receive Date: 20220822
  Receipt Date: 20220822
  Transmission Date: 20221027
  Serious: Yes (Other)
  Sender: FDA-Public Use
  Company Number: US-GSKCCFUS-Case-01465850_AE-83913

PATIENT

DRUGS (1)
  1. BELIMUMAB [Suspect]
     Active Substance: BELIMUMAB
     Indication: Systemic lupus erythematosus
     Dosage: 3 INFUSION
     Dates: start: 202203

REACTIONS (17)
  - Cellulitis [Unknown]
  - Retinal tear [Unknown]
  - Blindness [Unknown]
  - Infection [Unknown]
  - Eye inflammation [Unknown]
  - Eye pruritus [Unknown]
  - Eye swelling [Unknown]
  - Injection site pain [Unknown]
  - Insomnia [Unknown]
  - Balance disorder [Unknown]
  - Condition aggravated [Unknown]
  - Depression [Unknown]
  - Headache [Unknown]
  - Amnesia [Unknown]
  - Muscle tightness [Unknown]
  - Inflammation [Unknown]
  - Pain [Unknown]

NARRATIVE: CASE EVENT DATE: 20220101
